FAERS Safety Report 18723074 (Version 5)
Quarter: 2021Q3

REPORT INFORMATION
  Report Type: Spontaneous
  Country: GB (occurrence: GB)
  Receive Date: 20210111
  Receipt Date: 20210823
  Transmission Date: 20211014
  Serious: Yes (Death, Other)
  Sender: FDA-Public Use
  Company Number: GB-SA-2021SA005262

PATIENT
  Age: 55 Year
  Sex: Female

DRUGS (76)
  1. TRASTUZUMAB. [Suspect]
     Active Substance: TRASTUZUMAB
     Indication: HER2 POSITIVE BREAST CANCER
     Dosage: 525 MG, Q3W (LOADING DOSE)
     Route: 042
     Dates: start: 20170524, end: 20170524
  2. PERTUZUMAB. [Suspect]
     Active Substance: PERTUZUMAB
     Indication: HER2 POSITIVE BREAST CANCER
     Dosage: 420 MG, Q3W
     Route: 042
     Dates: start: 20170614, end: 20190327
  3. CETIRIZINE [Concomitant]
     Active Substance: CETIRIZINE HYDROCHLORIDE
     Indication: PUSTULE
     Dosage: UNK UNK, QD
     Route: 048
     Dates: start: 20190313
  4. CHLORHEXIDINE GLUCONATE. [Concomitant]
     Active Substance: CHLORHEXIDINE GLUCONATE
     Indication: PRODUCT USED FOR UNKNOWN INDICATION
     Dosage: UNK UNK, QID
     Route: 061
     Dates: start: 20170525
  5. CIPROFLOXACIN. [Concomitant]
     Active Substance: CIPROFLOXACIN
     Dosage: UNK, 0.5 DAY
     Route: 048
     Dates: start: 20200707, end: 202007
  6. METRONIDAZOLE. [Concomitant]
     Active Substance: METRONIDAZOLE
     Indication: DUODENAL ULCER
     Dosage: 400 MG, QM
     Route: 048
     Dates: start: 20201116, end: 202011
  7. TEICOPLANIN [Concomitant]
     Active Substance: TEICOPLANIN
     Indication: PYREXIA
     Dosage: UNK
     Route: 042
     Dates: start: 20200502, end: 20200515
  8. AMOXICILLIN. [Concomitant]
     Active Substance: AMOXICILLIN
     Indication: ABDOMINAL PAIN
  9. DOCETAXEL. [Suspect]
     Active Substance: DOCETAXEL
     Indication: HER2 POSITIVE BREAST CANCER
     Dosage: 130 MG, Q3W
     Route: 042
     Dates: start: 20170525, end: 20170525
  10. PACLITAXEL. [Suspect]
     Active Substance: PACLITAXEL
     Indication: HER2 POSITIVE BREAST CANCER
     Dosage: 450 MG, Q3W
     Route: 042
     Dates: start: 20170614, end: 20170614
  11. AMITRIPTYLINE HYDROCHLORIDE. [Concomitant]
     Active Substance: AMITRIPTYLINE HYDROCHLORIDE
     Indication: DEPRESSED MOOD
  12. TEICOPLANIN [Concomitant]
     Active Substance: TEICOPLANIN
     Indication: BILIARY SEPSIS
     Dosage: UNK
     Route: 042
     Dates: start: 20201028
  13. PACLITAXEL. [Suspect]
     Active Substance: PACLITAXEL
     Indication: BREAST CANCER
     Dosage: 375 MG, Q3W
     Route: 042
     Dates: start: 20170705, end: 20170726
  14. TRASTUZUMAB EMTANSINE [Suspect]
     Active Substance: ADO-TRASTUZUMAB EMTANSINE
     Dosage: 200 MG, Q3W
     Route: 042
     Dates: start: 20190627, end: 20190718
  15. AMITRIPTYLINE HYDROCHLORIDE. [Concomitant]
     Active Substance: AMITRIPTYLINE HYDROCHLORIDE
     Indication: ABDOMINAL PAIN
     Dosage: 5 MG, QD
     Route: 048
     Dates: start: 20190827
  16. AZTREONAM. [Concomitant]
     Active Substance: AZTREONAM
     Indication: BILIARY SEPSIS
     Dosage: UNK
     Route: 042
     Dates: start: 20200925, end: 20200925
  17. CIPROFLOXACIN. [Concomitant]
     Active Substance: CIPROFLOXACIN
     Indication: PYREXIA
     Dosage: 250 MG, BID
     Route: 048
     Dates: start: 20200726, end: 20200801
  18. CIPROFLOXACIN. [Concomitant]
     Active Substance: CIPROFLOXACIN
     Dosage: 500 MG, BID
     Route: 048
     Dates: start: 20200815, end: 20200819
  19. DOMPERIDONE [Concomitant]
     Active Substance: DOMPERIDONE
     Indication: PRODUCT USED FOR UNKNOWN INDICATION
     Dosage: 10 MG, 0.33 DAY
     Route: 048
     Dates: start: 20170523
  20. LANSOPRAZOLE. [Concomitant]
     Active Substance: LANSOPRAZOLE
     Indication: GASTRITIS
     Dosage: UNK UNK, QD
     Route: 048
     Dates: start: 20190730, end: 20190730
  21. TEICOPLANIN [Concomitant]
     Active Substance: TEICOPLANIN
     Dosage: UNK
     Route: 042
     Dates: start: 20200925, end: 20200925
  22. XELODA [Concomitant]
     Active Substance: CAPECITABINE
     Dosage: 1300 MG
     Route: 048
     Dates: start: 20201020
  23. AMOXICILLIN. [Concomitant]
     Active Substance: AMOXICILLIN
     Indication: PYREXIA
     Dosage: 625 MG, TID
     Route: 048
     Dates: start: 20201211, end: 20201216
  24. TRASTUZUMAB. [Suspect]
     Active Substance: TRASTUZUMAB
     Indication: BREAST CANCER
     Dosage: 400 MG, Q3W
     Route: 042
     Dates: start: 20170614, end: 20180425
  25. TRASTUZUMAB. [Suspect]
     Active Substance: TRASTUZUMAB
     Dosage: 240 MG, Q3W
     Route: 042
     Dates: start: 20190427, end: 20190606
  26. PACLITAXEL. [Suspect]
     Active Substance: PACLITAXEL
     Indication: BREAST CANCER
     Dosage: 275 MG, Q3W
     Route: 042
     Dates: start: 20170715
  27. TRASTUZUMAB EMTANSINE [Suspect]
     Active Substance: ADO-TRASTUZUMAB EMTANSINE
     Indication: BREAST CANCER
     Dosage: 240 MG, Q3W
     Route: 042
     Dates: start: 20190427, end: 20190606
  28. TRASTUZUMAB EMTANSINE [Suspect]
     Active Substance: ADO-TRASTUZUMAB EMTANSINE
     Dosage: 160 MG, Q3W
     Route: 042
     Dates: start: 20190829, end: 20200326
  29. CEFTRIAXONE. [Concomitant]
     Active Substance: CEFTRIAXONE
     Dosage: 2 G, QD
     Route: 042
     Dates: start: 20200925, end: 20200927
  30. CEFUROXIME. [Concomitant]
     Active Substance: CEFUROXIME
     Indication: BILIARY SEPSIS
     Dosage: 250 MG, BID, 0.5 DAY
     Route: 048
     Dates: start: 20200925, end: 20201009
  31. CLOBETASOL PROPIONATE. [Concomitant]
     Active Substance: CLOBETASOL PROPIONATE
     Indication: PRODUCT USED FOR UNKNOWN INDICATION
     Dosage: UNK, BID, 0.5DAY
     Route: 061
     Dates: start: 20170210
  32. MEROPENEM. [Concomitant]
     Active Substance: MEROPENEM
     Indication: BILIARY SEPSIS
     Dosage: 2 G, 0.33 DAY
     Route: 042
     Dates: start: 20200502, end: 20200515
  33. METRONIDAZOLE. [Concomitant]
     Active Substance: METRONIDAZOLE
     Indication: ABDOMINAL PAIN UPPER
     Dosage: UNK
     Dates: start: 20200630, end: 20200709
  34. PARACETAMOL [Concomitant]
     Active Substance: ACETAMINOPHEN
     Indication: PRODUCT USED FOR UNKNOWN INDICATION
     Dosage: UNK UNK, PRN
     Route: 048
     Dates: start: 20170525
  35. TRANEXAMIC ACID. [Concomitant]
     Active Substance: TRANEXAMIC ACID
     Indication: DUODENAL ULCER
     Dosage: 1 G
     Route: 048
     Dates: start: 20201112
  36. DOCETAXEL. [Suspect]
     Active Substance: DOCETAXEL
     Indication: BREAST CANCER
     Dosage: 130 MG
     Route: 065
  37. PACLITAXEL. [Suspect]
     Active Substance: PACLITAXEL
     Dosage: 275 MG, Q3W
     Route: 042
     Dates: start: 20170715
  38. AMIKACIN. [Concomitant]
     Active Substance: AMIKACIN
     Indication: BILIARY SEPSIS
     Dosage: UNK
     Route: 042
     Dates: start: 20200504, end: 20200504
  39. AZTREONAM. [Concomitant]
     Active Substance: AZTREONAM
     Indication: DUODENAL ULCER
     Dosage: UNK
     Route: 042
     Dates: start: 20201028
  40. CIPROFLOXACIN. [Concomitant]
     Active Substance: CIPROFLOXACIN
     Indication: CHOLECYSTITIS ACUTE
     Dosage: 500 MG, BID
     Route: 048
     Dates: start: 20200909, end: 20200916
  41. CIPROFLOXACIN. [Concomitant]
     Active Substance: CIPROFLOXACIN
     Dosage: 500 MG, BID
     Route: 048
     Dates: start: 20200823, end: 20200828
  42. ERTAPENEM. [Concomitant]
     Active Substance: ERTAPENEM SODIUM
     Indication: BILIARY SEPSIS
     Dosage: 1 G
     Route: 042
     Dates: start: 20200501, end: 20200502
  43. FUSIDIC ACID [Concomitant]
     Active Substance: FUSIDIC ACID
     Indication: PRODUCT USED FOR UNKNOWN INDICATION
     Dosage: UNK
     Dates: start: 201905
  44. HALAVEN [Concomitant]
     Active Substance: ERIBULIN MESYLATE
     Indication: BREAST CANCER
     Dosage: 1.85 MG
     Route: 042
     Dates: start: 20200611, end: 20200820
  45. IKERVIS [Concomitant]
     Active Substance: CYCLOSPORINE
     Indication: BLEPHARITIS
     Dosage: UNK
     Route: 047
     Dates: start: 201708
  46. MEROPENEM. [Concomitant]
     Active Substance: MEROPENEM
     Indication: ABDOMINAL PAIN
     Dosage: UNK
     Route: 042
     Dates: start: 20201130, end: 20201209
  47. TEICOPLANIN [Concomitant]
     Active Substance: TEICOPLANIN
     Dosage: UNK
     Route: 042
     Dates: start: 20200724, end: 20200728
  48. TINZAPARIN [Concomitant]
     Active Substance: TINZAPARIN
     Indication: THROMBOSIS
     Dosage: UNK UNK, QD
     Route: 058
     Dates: start: 20190916
  49. TRANEXAMIC ACID. [Concomitant]
     Active Substance: TRANEXAMIC ACID
     Indication: PRODUCT USED FOR UNKNOWN INDICATION
  50. VITAMIN K [Concomitant]
     Active Substance: PHYTONADIONE
     Indication: DUODENAL ULCER
     Dosage: 10 MG
     Route: 042
     Dates: start: 20201112, end: 20201112
  51. VITAMIN K [Concomitant]
     Active Substance: PHYTONADIONE
     Dosage: 10 MG
     Route: 042
     Dates: start: 20201112, end: 20201113
  52. APIXABAN [Concomitant]
     Active Substance: APIXABAN
     Dosage: UNK
     Route: 065
  53. TRASTUZUMAB. [Suspect]
     Active Substance: TRASTUZUMAB
     Dosage: 160 MG, Q3W
     Route: 042
     Dates: start: 20190829
  54. TRASTUZUMAB. [Suspect]
     Active Substance: TRASTUZUMAB
     Dosage: 200 MG, Q3W
     Route: 042
     Dates: start: 20190627, end: 20190718
  55. PACLITAXEL. [Suspect]
     Active Substance: PACLITAXEL
     Indication: HER2 POSITIVE BREAST CANCER
     Dosage: 275 MG, Q3W
     Route: 042
     Dates: start: 20170705
  56. FLUCLOXACILLIN [Concomitant]
     Active Substance: FLUCLOXACILLIN
     Indication: FOLLICULITIS
     Dosage: UNK
     Route: 048
     Dates: start: 20190122
  57. LOPERAMIDE [Concomitant]
     Active Substance: LOPERAMIDE
     Indication: PRODUCT USED FOR UNKNOWN INDICATION
     Dosage: 1 DF, PRN
     Route: 048
     Dates: start: 20170613
  58. OMEPRAZOLE. [Concomitant]
     Active Substance: OMEPRAZOLE
     Indication: DUODENAL ULCER
     Dosage: 40 MG, BID
     Route: 048
     Dates: start: 20201113, end: 20210205
  59. TINZAPARIN [Concomitant]
     Active Substance: TINZAPARIN
     Dosage: UNK, QD
     Route: 058
     Dates: start: 20170713, end: 20170723
  60. VANCOMYCIN [Concomitant]
     Active Substance: VANCOMYCIN
     Indication: CLOSTRIDIUM DIFFICILE INFECTION
     Dosage: 125 MG, 0.25 DAY
     Route: 048
     Dates: start: 20201030, end: 20201104
  61. PACLITAXEL. [Suspect]
     Active Substance: PACLITAXEL
     Dosage: 300 MG, Q3W
     Route: 042
     Dates: start: 20170816, end: 20170906
  62. CHLORPHENAMINE [Concomitant]
     Active Substance: CHLORPHENIRAMINE MALEATE
     Indication: PRODUCT USED FOR UNKNOWN INDICATION
     Dosage: UNK UNK, QID
     Route: 048
     Dates: start: 20170526
  63. MEROPENEM. [Concomitant]
     Active Substance: MEROPENEM
     Indication: PYREXIA
     Dosage: UNK
     Route: 065
  64. NERATINIB [Concomitant]
     Active Substance: NERATINIB
     Indication: PRODUCT USED FOR UNKNOWN INDICATION
     Dosage: 240 MG, QD
     Route: 048
     Dates: start: 20200919, end: 20201104
  65. VANCOMYCIN [Concomitant]
     Active Substance: VANCOMYCIN
     Dosage: 500 MILLIGRAM, QID, 0.25 DAY
     Route: 048
     Dates: start: 20201104, end: 20201113
  66. BLOOD [Concomitant]
     Active Substance: WHOLE BLOOD
     Indication: DUODENAL ULCER
     Dosage: 2 UNITS
     Route: 042
     Dates: start: 20201112, end: 20201112
  67. TRASTUZUMAB. [Suspect]
     Active Substance: TRASTUZUMAB
     Dosage: 378 MG, Q3W
     Route: 042
     Dates: start: 20180516, end: 20190327
  68. PERTUZUMAB. [Suspect]
     Active Substance: PERTUZUMAB
     Indication: BREAST CANCER
     Dosage: 840 MG, Q3W
     Route: 042
     Dates: start: 20170524, end: 20170524
  69. CALCICHEW D3 FORTE [Concomitant]
     Active Substance: CALCIUM\CHOLECALCIFEROL
     Indication: PRODUCT USED FOR UNKNOWN INDICATION
     Dosage: UNK UNK, TID
     Route: 048
     Dates: start: 20170525
  70. CEFTRIAXONE. [Concomitant]
     Active Substance: CEFTRIAXONE
     Indication: BILIARY SEPSIS
     Dosage: 250 MG, BID
     Route: 048
     Dates: start: 20200928, end: 20201012
  71. CEFUROXIME. [Concomitant]
     Active Substance: CEFUROXIME
     Dosage: 250 MG, BID, 0.5DAY
     Route: 048
     Dates: start: 20201028
  72. ERTAPENEM. [Concomitant]
     Active Substance: ERTAPENEM SODIUM
     Indication: CLOSTRIDIUM DIFFICILE INFECTION
     Dosage: 1 G
     Route: 042
     Dates: start: 20201104, end: 20201111
  73. IKERVIS [Concomitant]
     Active Substance: CYCLOSPORINE
     Route: 047
     Dates: start: 201708
  74. METRONIDAZOLE. [Concomitant]
     Active Substance: METRONIDAZOLE
     Indication: CHOLECYSTITIS ACUTE
     Dosage: UNK
     Route: 065
     Dates: start: 20200909, end: 20200914
  75. POTASSIUM BICARBONATE;POTASSIUM CHLORIDE [Concomitant]
     Indication: PRODUCT USED FOR UNKNOWN INDICATION
     Dosage: UNK, BID
     Route: 048
     Dates: start: 20170525
  76. ZOLEDRONIC ACID [Concomitant]
     Active Substance: ZOLEDRONIC ACID
     Indication: PRODUCT USED FOR UNKNOWN INDICATION
     Dosage: 4 MG, Q4W, (ONCE IN EVERY 3 TO4 WEEKS)
     Route: 048
     Dates: start: 20170525

REACTIONS (4)
  - Neuropathy peripheral [Recovering/Resolving]
  - Coagulopathy [Recovering/Resolving]
  - HER2 positive breast cancer [Fatal]
  - Off label use [Unknown]

NARRATIVE: CASE EVENT DATE: 20190716
